FAERS Safety Report 12952439 (Version 3)
Quarter: 2019Q4

REPORT INFORMATION
  Report Type: Spontaneous
  Country: US (occurrence: US)
  Receive Date: 20161117
  Receipt Date: 20191127
  Transmission Date: 20200122
  Serious: No
  Sender: FDA-Public Use
  Company Number: US-SA-2016SA178545

PATIENT
  Age: 73 Year
  Sex: Male

DRUGS (2)
  1. TOUJEO [Suspect]
     Active Substance: INSULIN GLARGINE
     Dosage: 78 U, QD
     Route: 065
  2. TOUJEO [Suspect]
     Active Substance: INSULIN GLARGINE
     Indication: TYPE 2 DIABETES MELLITUS
     Dosage: 60 DF,QD
     Route: 065

REACTIONS (3)
  - Device leakage [Unknown]
  - Blood glucose increased [Unknown]
  - Surgery [Unknown]

NARRATIVE: CASE EVENT DATE: 201609
